FAERS Safety Report 14322069 (Version 1)
Quarter: 2017Q4

REPORT INFORMATION
  Report Type: Spontaneous
  Country: JP (occurrence: JP)
  Receive Date: 20171225
  Receipt Date: 20171225
  Transmission Date: 20180321
  Serious: Yes (Hospitalization, Disabling, Other)
  Sender: FDA-Public Use
  Company Number: JP-ROCHE-1997332

PATIENT
  Age: 64 Year
  Sex: Female
  Weight: 44 kg

DRUGS (4)
  1. CISPLATIN. [Suspect]
     Active Substance: CISPLATIN
     Route: 065
     Dates: start: 20160707, end: 20160812
  2. CISPLATIN. [Suspect]
     Active Substance: CISPLATIN
     Indication: CERVIX CARCINOMA
     Route: 041
     Dates: start: 20170323, end: 20170622
  3. AVASTIN [Suspect]
     Active Substance: BEVACIZUMAB
     Indication: CERVIX CARCINOMA
     Dosage: INJECTION
     Route: 041
     Dates: start: 20170324, end: 20170624
  4. PACLITAXEL. [Suspect]
     Active Substance: PACLITAXEL
     Indication: CERVIX CARCINOMA
     Route: 041
     Dates: start: 20170323, end: 20170622

REACTIONS (7)
  - Pelvic inflammatory disease [Unknown]
  - Colitis ischaemic [Recovered/Resolved]
  - Bacteraemia [Unknown]
  - Malaise [Unknown]
  - Haemoglobin decreased [Unknown]
  - Female genital tract fistula [Recovered/Resolved with Sequelae]
  - Rectal ulcer [Recovered/Resolved]

NARRATIVE: CASE EVENT DATE: 20170712
